FAERS Safety Report 5497724-4 (Version None)
Quarter: 2007Q4

REPORT INFORMATION
  Report Type: 
  Country: None (occurrence: None)
  Receive Date: 20071025
  Receipt Date: 20070214
  Transmission Date: 20080405
  Serious: No
  Sender: FDA-Public Use
  Company Number: A0639556A

PATIENT
  Age: 64 Year
  Sex: Male

DRUGS (12)
  1. ADVAIR DISKUS 100/50 [Suspect]
     Indication: CHRONIC OBSTRUCTIVE PULMONARY DISEASE
     Dosage: 1PUFF TWICE PER DAY
     Route: 055
     Dates: start: 20070117
  2. INSULIN [Concomitant]
  3. DIOVAN [Concomitant]
  4. DYCLONINE [Concomitant]
  5. CARDURA [Concomitant]
  6. FLOMAX [Concomitant]
  7. UNKNOWN MEDICATION [Concomitant]
  8. MAGNESIUM SULFATE [Concomitant]
  9. METOCLOPRAMIDE [Concomitant]
  10. PREVACID [Concomitant]
  11. POTASSIUM CHLORIDE [Concomitant]
  12. UROXATRAL [Concomitant]

REACTIONS (2)
  - COUGH [None]
  - THROAT IRRITATION [None]
